FAERS Safety Report 6963857-6 (Version None)
Quarter: 2010Q3

REPORT INFORMATION
  Report Type: 
  Country: None (occurrence: None)
  Receive Date: 20100830
  Receipt Date: 20100817
  Transmission Date: 20110219
  Serious: Yes (Death)
  Sender: FDA-Public Use
  Company Number: MPS1-1000361

PATIENT
  Age: 8 Year
  Sex: Male

DRUGS (1)
  1. ALDURAZYME [Suspect]
     Indication: MUCOPOLYSACCHARIDOSIS
     Dosage: INTRAVENOUS
     Route: 042
     Dates: start: 20011228

REACTIONS (13)
  - ABASIA [None]
  - DEATH [None]
  - DEVELOPMENTAL DELAY [None]
  - GASTROENTERITIS [None]
  - NAUSEA [None]
  - PALLOR [None]
  - PYREXIA [None]
  - RESPIRATORY FAILURE [None]
  - SINUSITIS [None]
  - SPEECH DISORDER [None]
  - SURGERY [None]
  - UPPER RESPIRATORY TRACT INFECTION [None]
  - VOMITING [None]
